FAERS Safety Report 7952472-3 (Version None)
Quarter: 2011Q4

REPORT INFORMATION
  Report Type: 
  Country: None (occurrence: None)
  Receive Date: 20111201
  Receipt Date: 20111118
  Transmission Date: 20120403
  Serious: Yes (Disabling, Other)
  Sender: FDA-Public Use
  Company Number: JP-SANOFI-AVENTIS-2011SA062107

PATIENT
  Age: 61 Year
  Sex: Male
  Weight: 75.3 kg

DRUGS (19)
  1. INSULIN GLULISINE [Suspect]
     Dosage: DOSE:4 UNIT(S)
     Route: 058
     Dates: start: 20101210, end: 20110106
  2. SOLOSTAR [Suspect]
     Indication: DEVICE THERAPY
     Dates: start: 20101127
  3. INSULIN GLULISINE [Suspect]
     Dosage: DOSE:7 UNIT(S)
     Route: 058
     Dates: start: 20110225, end: 20110623
  4. INSULIN GLULISINE [Suspect]
     Dosage: DOSE:8 UNIT(S)
     Route: 058
     Dates: start: 20110218, end: 20110224
  5. LANSOPRAZOLE [Concomitant]
     Route: 048
  6. CARVEDILOL [Concomitant]
     Route: 048
  7. LASIX [Concomitant]
     Route: 048
  8. PLAVIX [Concomitant]
     Indication: PROPHYLAXIS
     Route: 048
  9. INSULIN DETEMIR [Concomitant]
     Dates: end: 20101126
  10. INSULIN GLULISINE [Suspect]
     Dosage: DOSE:26 UNIT(S)
     Route: 058
     Dates: start: 20101127, end: 20101209
  11. HUMALOG [Concomitant]
     Dosage: 5 UNITS IN THE MORNING, 7 UNITS IN THE DAYTIME, 5 UNITS IN THE EVENING.
     Dates: end: 20101126
  12. ITAVASTATIN [Concomitant]
     Route: 048
  13. LAXATIVES [Concomitant]
     Route: 048
  14. INSULIN GLULISINE [Suspect]
     Dosage: DOSE:7 UNIT(S)
     Route: 058
     Dates: start: 20110107, end: 20110217
  15. INSULIN GLULISINE [Suspect]
     Dosage: DOSE:9 UNIT(S)
     Route: 058
     Dates: start: 20110624
  16. AMLODIPINE BESYLATE [Concomitant]
     Route: 048
  17. VALSARTAN [Concomitant]
     Route: 048
  18. MONILAC [Concomitant]
     Route: 048
  19. SHINLUCK [Concomitant]
     Route: 048

REACTIONS (2)
  - DECREASED APPETITE [None]
  - RENAL FAILURE [None]
